FAERS Safety Report 4963377-4 (Version None)
Quarter: 2006Q1

REPORT INFORMATION
  Report Type: 
  Country: None (occurrence: None)
  Receive Date: 20060329
  Receipt Date: 20060320
  Transmission Date: 20060701
  Serious: Yes (Other)
  Sender: FDA-Public Use
  Company Number: 2006039531

PATIENT
  Sex: Female
  Weight: 74.8435 kg

DRUGS (8)
  1. LIPITOR [Suspect]
     Indication: BLOOD CHOLESTEROL INCREASED
     Dosage: 10 MG (10 MG, 1 IN 1 D), ORAL
     Route: 048
  2. LANOXIN [Concomitant]
  3. ZOLOFT [Concomitant]
  4. PROPRANOLOL [Concomitant]
  5. KLOR-CON [Concomitant]
  6. NORVASC [Concomitant]
  7. LISINOPRIL [Concomitant]
  8. ASPIRIN [Concomitant]

REACTIONS (6)
  - BACK DISORDER [None]
  - BODY HEIGHT DECREASED [None]
  - DIABETES MELLITUS [None]
  - DYSSTASIA [None]
  - MUSCLE SPASMS [None]
  - PAIN IN EXTREMITY [None]
